FAERS Safety Report 16267864 (Version 1)
Quarter: 2019Q2

REPORT INFORMATION
  Report Type: Spontaneous
  Country: CA (occurrence: CA)
  Receive Date: 20190503
  Receipt Date: 20190503
  Transmission Date: 20190711
  Serious: Yes (Other)
  Sender: FDA-Public Use
  Company Number: CA-ABBVIE-19K-028-2763276-00

PATIENT
  Sex: Female

DRUGS (10)
  1. CHOLESTYRAMINE. [Concomitant]
     Active Substance: CHOLESTYRAMINE
     Indication: PRODUCT USED FOR UNKNOWN INDICATION
     Dosage: 4 G POWER PACK IF NEEDED
  2. PREDNISONE. [Concomitant]
     Active Substance: PREDNISONE
     Indication: PRODUCT USED FOR UNKNOWN INDICATION
     Dosage: 8 TABLETS, TAPER BY 1 TABLET WEEKLY UNTIL 23 MAY 2019
     Dates: start: 20190328
  3. POTASSIUM [Concomitant]
     Active Substance: POTASSIUM
     Indication: PRODUCT USED FOR UNKNOWN INDICATION
  4. HUMIRA [Suspect]
     Active Substance: ADALIMUMAB
     Indication: PRODUCT USED FOR UNKNOWN INDICATION
     Route: 058
  5. CODEINE [Suspect]
     Active Substance: CODEINE
     Indication: PRODUCT USED FOR UNKNOWN INDICATION
     Dosage: 2-3 TIMES PER DAY PRN
     Route: 048
  6. CODEINE [Suspect]
     Active Substance: CODEINE
     Dosage: 15-30 MG PRN
     Route: 065
  7. IMODIUM [Concomitant]
     Active Substance: LOPERAMIDE HYDROCHLORIDE
     Indication: PRODUCT USED FOR UNKNOWN INDICATION
  8. STELARA [Concomitant]
     Active Substance: USTEKINUMAB
     Indication: PRODUCT USED FOR UNKNOWN INDICATION
  9. METHOTREXATE. [Suspect]
     Active Substance: METHOTREXATE
     Indication: PRODUCT USED FOR UNKNOWN INDICATION
     Route: 065
  10. IMURAN [Concomitant]
     Active Substance: AZATHIOPRINE
     Indication: PRODUCT USED FOR UNKNOWN INDICATION

REACTIONS (27)
  - Spinal operation [Unknown]
  - Cholecystectomy [Unknown]
  - Appendicectomy [Unknown]
  - Suprapubic pain [Unknown]
  - Sacroiliitis [Unknown]
  - Gastric operation [Unknown]
  - C-reactive protein increased [Unknown]
  - Breast cancer [Unknown]
  - Anaphylactic reaction [Unknown]
  - Nephrolithiasis [Unknown]
  - Intestinal fibrosis [Unknown]
  - Laparotomy [Unknown]
  - Arthropathy [Unknown]
  - Post procedural diarrhoea [Not Recovered/Not Resolved]
  - Abdominal pain lower [Unknown]
  - Weight decreased [Unknown]
  - Unevaluable event [Unknown]
  - Renal cancer [Unknown]
  - Frequent bowel movements [Unknown]
  - Incontinence [Unknown]
  - Tonsillectomy [Unknown]
  - Ileal stenosis [Unknown]
  - Surgery [Unknown]
  - Lymphadenopathy [Unknown]
  - Inflammation [Unknown]
  - Back pain [Unknown]
  - Drug hypersensitivity [Unknown]
